FAERS Safety Report 17438638 (Version 1)
Quarter: 2020Q1

REPORT INFORMATION
  Report Type: Spontaneous
  Country: PT (occurrence: PT)
  Receive Date: 20200220
  Receipt Date: 20200220
  Transmission Date: 20200409
  Serious: Yes (Other)
  Sender: FDA-Public Use
  Company Number: PT-AUROBINDO-AUR-APL-2020-008687

PATIENT
  Age: 2 Year
  Sex: Male

DRUGS (1)
  1. CEFUROXIME. [Suspect]
     Active Substance: CEFUROXIME
     Indication: OTITIS MEDIA ACUTE
     Dosage: UNK
     Route: 065
     Dates: start: 201812

REACTIONS (3)
  - Salivary hypersecretion [Recovered/Resolved]
  - Speech disorder [Recovered/Resolved]
  - Angioedema [Recovered/Resolved]

NARRATIVE: CASE EVENT DATE: 201812
